FAERS Safety Report 8586391-9 (Version None)
Quarter: 2012Q3

REPORT INFORMATION
  Report Type: 
  Country: None (occurrence: None)
  Receive Date: 20120810
  Receipt Date: 20120801
  Transmission Date: 20120928
  Serious: Yes (Hospitalization)
  Sender: FDA-Public Use
  Company Number: IT-PFIZER INC-2012182839

PATIENT
  Age: 81 Year
  Sex: Female

DRUGS (8)
  1. CLONAZEPAM [Concomitant]
     Dosage: UNK
  2. ORAMORPH SR [Suspect]
     Indication: PAIN
     Dosage: 12 GTT, DAILY
     Route: 048
     Dates: start: 20120117, end: 20120619
  3. BISOPROLOL FUMARATE [Concomitant]
     Dosage: UNK
  4. FERROFOLIN [Concomitant]
     Dosage: UNK
  5. OMEPRAZOLE [Concomitant]
     Dosage: UNK
  6. MS CONTIN [Suspect]
     Indication: PAIN
     Dosage: 20 MG, DAILY
     Route: 048
     Dates: start: 20110101, end: 20120619
  7. GABAPENTIN [Concomitant]
     Dosage: UNK
  8. FEMARA [Concomitant]
     Dosage: UNK

REACTIONS (1)
  - RESPIRATORY DEPRESSION [None]
